FAERS Safety Report 5602603-5 (Version None)
Quarter: 2008Q1

REPORT INFORMATION
  Report Type: 
  Country: None (occurrence: None)
  Receive Date: 20080125
  Receipt Date: 20080122
  Transmission Date: 20080703
  Serious: No
  Sender: FDA-Public Use
  Company Number: US-BAXTER-2008BH000638

PATIENT
  Age: 7 Year
  Sex: Female

DRUGS (2)
  1. HEPARIN SODIUM [Suspect]
     Indication: LOW DENSITY LIPOPROTEIN APHERESIS
     Dosage: DOSE UNIT:UNITS PER KILOGRAM
     Route: 040
     Dates: start: 20080122, end: 20080122
  2. HEPARIN SODIUM [Suspect]
     Dosage: DOSE UNIT:UNKNOWN
     Route: 042
     Dates: start: 20080122, end: 20080122

REACTIONS (3)
  - CHEST PAIN [None]
  - LIP SWELLING [None]
  - PHARYNGEAL OEDEMA [None]
